FAERS Safety Report 10599253 (Version 1)
Quarter: 2014Q4

REPORT INFORMATION
  Report Type: Spontaneous
  Country: US (occurrence: US)
  Receive Date: 20141121
  Receipt Date: 20141121
  Transmission Date: 20150529
  Serious: Yes (Other)
  Sender: FDA-Public Use
  Company Number: US-CELGENE-USA-2014113081

PATIENT

DRUGS (1)
  1. THALOMID [Suspect]
     Active Substance: THALIDOMIDE
     Indication: PRODUCT USED FOR UNKNOWN INDICATION
     Dosage: 200 MILLIGRAM
     Route: 048

REACTIONS (24)
  - Alopecia [Unknown]
  - Dyspnoea [Unknown]
  - Decreased appetite [Unknown]
  - Paraesthesia [Unknown]
  - Hypoalbuminaemia [Unknown]
  - Thrombocytopenia [Unknown]
  - Rash [Unknown]
  - Pain [Unknown]
  - Aspartate aminotransferase increased [Unknown]
  - Oedema [Unknown]
  - Blood alkaline phosphatase increased [Unknown]
  - Blood bilirubin increased [Unknown]
  - Anaemia [Unknown]
  - Vomiting [Unknown]
  - Nausea [Unknown]
  - Constipation [Unknown]
  - Tremor [Unknown]
  - Fatigue [Unknown]
  - Leukopenia [Unknown]
  - Pyrexia [Unknown]
  - Hyponatraemia [Unknown]
  - Somnolence [Unknown]
  - Alanine aminotransferase increased [Unknown]
  - Dizziness [Unknown]
